FAERS Safety Report 14936761 (Version 2)
Quarter: 2018Q4

REPORT INFORMATION
  Report Type: Spontaneous
  Country: FR (occurrence: FR)
  Receive Date: 20180525
  Receipt Date: 20181129
  Transmission Date: 20190204
  Serious: Yes (Other)
  Sender: FDA-Public Use
  Company Number: FR-MERCK KGAA-2048424

PATIENT
  Age: 29 Year
  Sex: Female

DRUGS (1)
  1. EUTHYROX [Suspect]
     Active Substance: LEVOTHYROXINE SODIUM
     Indication: PRODUCT USED FOR UNKNOWN INDICATION

REACTIONS (15)
  - Anti-thyroid antibody positive [None]
  - Headache [None]
  - Insomnia [None]
  - Dizziness [None]
  - Fatigue [None]
  - Fear [None]
  - Thyroxine free decreased [None]
  - Sleep disorder [None]
  - Muscle spasms [None]
  - Alopecia [None]
  - Serum ferritin decreased [None]
  - Depression [None]
  - Crying [None]
  - Platelet count decreased [None]
  - Blood thyroid stimulating hormone increased [None]

NARRATIVE: CASE EVENT DATE: 2017
